FAERS Safety Report 9338429 (Version 2)
Quarter: 2013Q2

REPORT INFORMATION
  Report Type: Spontaneous
  Country: US (occurrence: US)
  Receive Date: 20130610
  Receipt Date: 20130620
  Transmission Date: 20140414
  Serious: Yes (Other)
  Sender: FDA-Public Use
  Company Number: US-PFIZER INC-2013174306

PATIENT
  Age: 59 Year
  Sex: Female
  Weight: 76.19 kg

DRUGS (8)
  1. ZOLOFT [Suspect]
     Indication: DEMENTIA
     Dosage: 50MG DAILY
  2. ALPRAZOLAM [Concomitant]
     Indication: DEMENTIA
     Dosage: HALLF TO TWO TABLETS OF 0.5MG, 3X/DAY
  3. METFORMIN [Concomitant]
     Indication: DIABETES MELLITUS
     Dosage: 1000 MG, UNK
  4. METFORMIN [Concomitant]
     Dosage: 500MG DAILY
  5. PRAVASTATIN [Concomitant]
     Dosage: 40MG DAILY
  6. LISINOPRIL [Concomitant]
     Dosage: 20MG DAILY
  7. CHLORTHALIDONE [Concomitant]
     Dosage: 25MG DAILY
  8. AMLODIPINE BESILATE [Concomitant]
     Dosage: 5MG DAILY

REACTIONS (2)
  - Weight decreased [Unknown]
  - Off label use [Unknown]
